FAERS Safety Report 13044957 (Version 1)
Quarter: 2016Q4

REPORT INFORMATION
  Report Type: Spontaneous
  Country: US (occurrence: US)
  Receive Date: 20161220
  Receipt Date: 20161220
  Transmission Date: 20170207
  Serious: No
  Sender: FDA-Public Use
  Company Number: US-ASTRAZENECA-2016SF31063

PATIENT
  Age: 60 Year
  Sex: Female
  Weight: 52.2 kg

DRUGS (10)
  1. LISINOPRIL. [Suspect]
     Active Substance: LISINOPRIL
     Indication: HYPERTENSION
     Route: 048
     Dates: start: 1995
  2. COUMADIN [Concomitant]
     Active Substance: WARFARIN SODIUM
     Dosage: ONCE DAILY 4MG MONDAY THROUGH SATURDAY AND COUMADIN 6MG ON SUNDAYS
     Dates: start: 2004
  3. MOVANTIK [Suspect]
     Active Substance: NALOXEGOL OXALATE
     Indication: CONSTIPATION
     Dosage: 25.0MG UNKNOWN
     Route: 048
     Dates: start: 20161129
  4. LIBRIUM [Concomitant]
     Active Substance: CHLORDIAZEPOXIDE HYDROCHLORIDE
  5. HYDROCODONE BITARTRATE AND ACETAMINOPHEN [Concomitant]
     Active Substance: ACETAMINOPHEN\HYDROCODONE BITARTRATE
     Indication: BACK PAIN
     Dosage: 10/325 TWO TABLETS EVERY 6 HOURS
     Dates: start: 2011
  6. ALBUTEROL. [Concomitant]
     Active Substance: ALBUTEROL
     Dosage: 2.5MG VIA NEBULIZER TID
  7. FUROSEMIDE. [Concomitant]
     Active Substance: FUROSEMIDE
     Indication: DIURETIC THERAPY
     Route: 048
     Dates: start: 1995
  8. EFFEXOR XR EXTENDED-RELEASE [Concomitant]
     Active Substance: VENLAFAXINE HYDROCHLORIDE
     Indication: DEPRESSION
     Route: 048
     Dates: start: 1983
  9. STIOLITO RESPIMANTE [Concomitant]
     Dosage: 2.3MG I PUFF INHALED BID
     Dates: start: 2010
  10. VALIUM [Concomitant]
     Active Substance: DIAZEPAM

REACTIONS (14)
  - Aneurysm [Unknown]
  - Constipation [Unknown]
  - Vaginal haemorrhage [Unknown]
  - Blood urine present [Unknown]
  - Renal pain [Unknown]
  - Heart rate increased [Unknown]
  - Intervertebral disc protrusion [Unknown]
  - Dyspepsia [Unknown]
  - Drug ineffective [Unknown]
  - Constipation [Unknown]
  - Thrombosis [Unknown]
  - Back pain [Unknown]
  - Chronic obstructive pulmonary disease [Unknown]
  - Intentional product misuse [Unknown]

NARRATIVE: CASE EVENT DATE: 2003
